FAERS Safety Report 12827711 (Version 2)
Quarter: 2017Q3

REPORT INFORMATION
  Report Type: Report from Study
  Country: PL (occurrence: PL)
  Receive Date: 20161006
  Receipt Date: 20170901
  Transmission Date: 20171127
  Serious: Yes (Other)
  Sender: FDA-Public Use
  Company Number: PL-B.I. PHARMACEUTICALS,INC./RIDGEFIELD-2016-BI-063691

PATIENT
  Age: 84 Year
  Sex: Male
  Weight: 86.5 kg

DRUGS (10)
  1. NOVOMIX [Concomitant]
     Active Substance: INSULIN ASPART
     Indication: TYPE 2 DIABETES MELLITUS
     Dosage: STRENGTH: 30
     Route: 058
     Dates: start: 2014
  2. DIUVER [Concomitant]
     Active Substance: TORSEMIDE
     Indication: HYPERTENSION
     Route: 048
     Dates: start: 2011
  3. DIUVER [Concomitant]
     Active Substance: TORSEMIDE
     Indication: DIABETIC NEUROPATHY
  4. TRI MAG B6 [Concomitant]
     Indication: PROPHYLAXIS
     Route: 048
     Dates: start: 2015
  5. PRIVINIL [Concomitant]
     Indication: HYPERTENSION
     Route: 048
     Dates: start: 2012
  6. TRI MAG B6 [Concomitant]
     Indication: MAGNESIUM DEFICIENCY
  7. NOVORAPID [Concomitant]
     Active Substance: INSULIN ASPART
     Indication: TYPE 2 DIABETES MELLITUS
     Route: 058
     Dates: start: 2014
  8. BLINDED LINAGLIPTIN [Suspect]
     Active Substance: LINAGLIPTIN
     Indication: TYPE 2 DIABETES MELLITUS
     Route: 048
     Dates: start: 20160629
  9. BETO ZK [Concomitant]
     Active Substance: METOPROLOL SUCCINATE
     Indication: HYPERTENSION
     Route: 048
     Dates: start: 2012
  10. PRIVINIL [Concomitant]
     Indication: DIABETIC NEUROPATHY

REACTIONS (1)
  - Deep vein thrombosis [Recovered/Resolved]

NARRATIVE: CASE EVENT DATE: 201608
